FAERS Safety Report 8078262-1 (Version None)
Quarter: 2012Q1

REPORT INFORMATION
  Report Type: 
  Country: None (occurrence: None)
  Receive Date: 20120123
  Receipt Date: 20120109
  Transmission Date: 20120608
  Serious: Yes (Other)
  Sender: FDA-Public Use
  Company Number: 2012P1000829

PATIENT
  Age: 33 Year
  Sex: Female
  Weight: 108.8633 kg

DRUGS (2)
  1. LAMOTRIGINE [Suspect]
     Indication: CONVULSION
     Dosage: 100 MG;BID;PO
     Route: 048
     Dates: start: 20110801, end: 20111001
  2. LAMOTRIGINE [Suspect]
     Indication: CONVULSION
     Dosage: 200 MG;BID;
     Dates: start: 20111001

REACTIONS (3)
  - DRUG LEVEL BELOW THERAPEUTIC [None]
  - ALOPECIA [None]
  - DRUG EFFECT DECREASED [None]
